FAERS Safety Report 17447034 (Version 1)
Quarter: 2020Q1

REPORT INFORMATION
  Report Type: Spontaneous
  Country: GB (occurrence: GB)
  Receive Date: 20200221
  Receipt Date: 20200221
  Transmission Date: 20200409
  Serious: Yes (Other)
  Sender: FDA-Public Use
  Company Number: GB-ASTRAZENECA-2020SE23955

PATIENT
  Age: 65 Year
  Sex: Male

DRUGS (2)
  1. KEYTRUDA [Concomitant]
     Active Substance: PEMBROLIZUMAB
  2. LYNPARZA [Suspect]
     Active Substance: OLAPARIB
     Indication: THROAT CANCER
     Route: 048

REACTIONS (3)
  - Neoplasm recurrence [Unknown]
  - Off label use [Unknown]
  - Dysphagia [Unknown]
